FAERS Safety Report 7506611-9 (Version None)
Quarter: 2011Q2

REPORT INFORMATION
  Report Type: 
  Country: None (occurrence: None)
  Receive Date: 20110526
  Receipt Date: 20110518
  Transmission Date: 20111010
  Serious: Yes (Hospitalization, Other)
  Sender: FDA-Public Use
  Company Number: BR-US-EMD SERONO, INC.-7060817

PATIENT
  Sex: Female

DRUGS (5)
  1. REBIF [Suspect]
     Dates: start: 20110501
  2. FLUOXETINE [Concomitant]
  3. TRILEPTAL [Concomitant]
  4. ACETAMINOPHEN [Concomitant]
     Dosage: 2 TABLET BEFORE REBIF
  5. REBIF [Suspect]
     Dosage: REBIF UNSPECIFIED DOSAGE
     Dates: end: 20110401

REACTIONS (11)
  - DIPLOPIA [None]
  - RASH [None]
  - PANIC ATTACK [None]
  - ASTHENIA [None]
  - SOMNOLENCE [None]
  - GAIT DISTURBANCE [None]
  - ANXIETY [None]
  - URINARY TRACT INFECTION [None]
  - MOOD ALTERED [None]
  - VISION BLURRED [None]
  - BIPOLAR DISORDER [None]
